FAERS Safety Report 17628913 (Version 1)
Quarter: 2020Q2

REPORT INFORMATION
  Report Type: Spontaneous
  Country: DK (occurrence: DK)
  Receive Date: 20200406
  Receipt Date: 20200406
  Transmission Date: 20200713
  Serious: Yes (Hospitalization)
  Sender: FDA-Public Use
  Company Number: DK-TEVA-2020-DK-1218350

PATIENT
  Age: 84 Year
  Sex: Male

DRUGS (6)
  1. MOXICLAV ^MEDOCHEMIE^ [Suspect]
     Active Substance: AMOXICILLIN\CLAVULANATE POTASSIUM
     Indication: PNEUMONIA
     Dosage: STRENGTH: 1000 MG + 200MG, 3 DOSAGE FORMS 1 DAYS
     Route: 042
     Dates: start: 20200308, end: 20200311
  2. ATORVASTATIN [Concomitant]
     Active Substance: ATORVASTATIN
     Indication: HYPERCHOLESTEROLAEMIA
     Dosage: STRENGTH: 80 MG , 80  MG 1 DAYS
     Route: 048
     Dates: start: 20180618
  3. HJERTEMAGNYL [Concomitant]
     Indication: THROMBOSIS PROPHYLAXIS
     Dosage: STRENGTH: 75 MG , 75 MG 1 DAYS
     Route: 048
     Dates: start: 20180618
  4. FURIX [Concomitant]
     Indication: DIURETIC THERAPY
     Dosage: STRENGTH: 30 MG , 30 MG 1 DAYS
     Route: 048
     Dates: start: 20191129
  5. FLUCONAZOLE. [Suspect]
     Active Substance: FLUCONAZOLE
     Indication: ORAL CANDIDIASIS
     Dosage: STRENGTH: 50 MG , 50 MG 1 DAYS
     Route: 048
     Dates: start: 202002, end: 20200311
  6. METOPROLOL. [Concomitant]
     Active Substance: METOPROLOL
     Indication: ARRHYTHMIA
     Dosage: STRENGTH: 100 MG , 100 MG 1 DAYS
     Route: 048
     Dates: start: 20180618

REACTIONS (1)
  - Alanine aminotransferase increased [Not Recovered/Not Resolved]

NARRATIVE: CASE EVENT DATE: 20200310
